FAERS Safety Report 8758242 (Version 1)
Quarter: 2012Q4

REPORT INFORMATION
  Report Type: 
  Country: US (occurrence: US)
  Receive Date: 20120829
  Receipt Date: 20120829
  Transmission Date: 20130627
  Serious: Yes (Hospitalization)
  Sender: FDA-Public Use
  Company Number: US-ELI_LILLY_AND_COMPANY-US201208006737

PATIENT
  Age: 45 Year
  Sex: Male

DRUGS (4)
  1. CYMBALTA [Suspect]
     Indication: DEPRESSION
     Dosage: 90 mg, unknown
     Dates: end: 201202
  2. CYMBALTA [Suspect]
     Dosage: 120 mg, unknown
     Dates: start: 201202
  3. ABILIFY [Concomitant]
  4. WELLBUTRIN [Concomitant]
     Dosage: UNK
     Dates: start: 201208

REACTIONS (1)
  - Gallbladder disorder [Unknown]
